FAERS Safety Report 7622413-7 (Version None)
Quarter: 2011Q3

REPORT INFORMATION
  Report Type: 
  Country: None (occurrence: None)
  Receive Date: 20110720
  Receipt Date: 20100707
  Transmission Date: 20111222
  Serious: No
  Sender: FDA-Public Use
  Company Number: US-MYLANLABS-2010S1012281

PATIENT
  Sex: Male

DRUGS (1)
  1. TRAMADOL HYDROCHLORIDE [Suspect]
     Route: 048

REACTIONS (6)
  - GASTROINTESTINAL SOUNDS ABNORMAL [None]
  - FLATULENCE [None]
  - DEFAECATION URGENCY [None]
  - ABDOMINAL PAIN [None]
  - NAUSEA [None]
  - FLUSHING [None]
